FAERS Safety Report 5857453-1 (Version None)
Quarter: 2008Q3

REPORT INFORMATION
  Report Type: 
  Country: None (occurrence: None)
  Receive Date: 20080818
  Receipt Date: 20080523
  Transmission Date: 20090109
  Serious: No
  Sender: FDA-Public Use
  Company Number: TPA2008A00478

PATIENT
  Age: 51 Year
  Sex: Male
  Weight: 74.8435 kg

DRUGS (3)
  1. ROZEREM [Suspect]
     Indication: INSOMNIA
     Dosage: 8 MG, QHS, PER ORAL
     Route: 048
     Dates: start: 20080201, end: 20080403
  2. ASACOL [Concomitant]
  3. LYRICA [Concomitant]

REACTIONS (4)
  - DISCOMFORT [None]
  - GENERAL PHYSICAL CONDITION ABNORMAL [None]
  - INITIAL INSOMNIA [None]
  - PALPITATIONS [None]
